FAERS Safety Report 11029457 (Version 2)
Quarter: 2015Q2

REPORT INFORMATION
  Report Type: Spontaneous
  Country: FR (occurrence: FR)
  Receive Date: 20150415
  Receipt Date: 20150428
  Transmission Date: 20150821
  Serious: Yes (Life-Threatening, Hospitalization)
  Sender: FDA-Public Use
  Company Number: FR-ROCHE-1564231

PATIENT
  Age: 44 Year
  Sex: Male
  Weight: 62 kg

DRUGS (2)
  1. MABTHERA [Suspect]
     Active Substance: RITUXIMAB
     Dosage: 8 CYCLES
     Route: 042
     Dates: start: 20070927, end: 20080903
  2. MABTHERA [Suspect]
     Active Substance: RITUXIMAB
     Indication: NON-HODGKIN^S LYMPHOMA
     Dosage: 8 CYCLES
     Route: 042
     Dates: start: 20061121, end: 20070423

REACTIONS (6)
  - Acute respiratory distress syndrome [Unknown]
  - Pneumocystis jirovecii pneumonia [Recovered/Resolved]
  - Bronchopneumonia [Recovered/Resolved]
  - Herpes virus infection [Recovered/Resolved]
  - Bronchopulmonary aspergillosis [Recovered/Resolved]
  - Hypogammaglobulinaemia [Not Recovered/Not Resolved]

NARRATIVE: CASE EVENT DATE: 20081110
